FAERS Safety Report 24434565 (Version 1)
Quarter: 2024Q4

REPORT INFORMATION
  Report Type: Spontaneous
  Country: FR (occurrence: FR)
  Receive Date: 20241014
  Receipt Date: 20241014
  Transmission Date: 20250115
  Serious: Yes (Other)
  Sender: MYLAN
  Company Number: None

PATIENT
  Age: 40 Year
  Sex: Male

DRUGS (1)
  1. BUPRENORPHINE [Suspect]
     Active Substance: BUPRENORPHINE
     Indication: Product used for unknown indication
     Dosage: UNK
     Route: 048
     Dates: start: 20240831

REACTIONS (5)
  - Drug use disorder [Unknown]
  - Muscle spasms [Unknown]
  - Dyspnoea [Unknown]
  - Anxiety [Unknown]
  - Vertigo [Unknown]

NARRATIVE: CASE EVENT DATE: 20240831
